FAERS Safety Report 15223541 (Version 3)
Quarter: 2019Q1

REPORT INFORMATION
  Report Type: Report from Study
  Country: FR (occurrence: FR)
  Receive Date: 20180731
  Receipt Date: 20190205
  Transmission Date: 20190417
  Serious: Yes (Hospitalization)
  Sender: FDA-Public Use
  Company Number: FR-TAKEDA-2018TUS023633

PATIENT
  Sex: Female

DRUGS (3)
  1. VEDOLIZUMAB [Suspect]
     Active Substance: VEDOLIZUMAB
     Indication: PRODUCT USED FOR UNKNOWN INDICATION
     Dosage: UNK
     Route: 042
     Dates: start: 20160916, end: 20161028
  2. REVOLADE [Concomitant]
     Active Substance: ELTROMBOPAG
     Dosage: UNK
  3. ADVAGRAF [Concomitant]
     Active Substance: TACROLIMUS
     Dosage: UNK

REACTIONS (3)
  - Intervertebral discitis [Recovered/Resolved]
  - Pleural effusion [Recovered/Resolved]
  - Febrile neutropenia [Recovered/Resolved]

NARRATIVE: CASE EVENT DATE: 20171009
